FAERS Safety Report 4583800-7 (Version None)
Quarter: 2005Q1

REPORT INFORMATION
  Report Type: 
  Country: None (occurrence: None)
  Receive Date: 20050211
  Receipt Date: 20050201
  Transmission Date: 20050727
  Serious: Yes (Hospitalization)
  Sender: FDA-Public Use
  Company Number: 2005-00472

PATIENT
  Age: 48 Year
  Sex: Male

DRUGS (1)
  1. NAFCILLIN SODIUM [Suspect]
     Indication: STAPHYLOCOCCAL BACTERAEMIA
     Dosage: 12 G/DAY IN DIVIDED DOSE, INTRAVENOUS
     Route: 042

REACTIONS (1)
  - LUPUS-LIKE SYNDROME [None]
